FAERS Safety Report 19504999 (Version 1)
Quarter: 2021Q3

REPORT INFORMATION
  Report Type: Spontaneous
  Country: US (occurrence: US)
  Receive Date: 20210707
  Receipt Date: 20210707
  Transmission Date: 20211014
  Serious: No
  Sender: FDA-Public Use
  Company Number: US-SA-2021SA221072

PATIENT
  Age: 58 Year
  Sex: Female

DRUGS (5)
  1. DUPIXENT [Suspect]
     Active Substance: DUPILUMAB
     Indication: DERMATITIS ALLERGIC
     Route: 058
     Dates: start: 20210413
  2. AMITRIPTYLLIN [Concomitant]
     Active Substance: AMITRIPTYLINE HYDROCHLORIDE
  3. LYRICA [Concomitant]
     Active Substance: PREGABALIN
  4. LEVOTHYROXINE. [Concomitant]
     Active Substance: LEVOTHYROXINE
  5. MULTIVITAMINS;MINERALS [Concomitant]
     Active Substance: MINERALS\VITAMINS

REACTIONS (2)
  - Product use in unapproved indication [Unknown]
  - Visual impairment [Not Recovered/Not Resolved]

NARRATIVE: CASE EVENT DATE: 2021
